FAERS Safety Report 20518692 (Version 2)
Quarter: 2022Q2

REPORT INFORMATION
  Report Type: Other
  Country: US (occurrence: None)
  Receive Date: 20220225
  Receipt Date: 20220405
  Transmission Date: 20220720
  Serious: Yes (Other)
  Sender: FDA-Public Use
  Company Number: US-ROCHE-3028601

PATIENT
  Age: 53 Year
  Sex: Female
  Weight: 84.444 kg

DRUGS (8)
  1. OCREVUS [Suspect]
     Active Substance: OCRELIZUMAB
     Indication: Relapsing-remitting multiple sclerosis
     Dosage: STARTED ABOUT 2 YEARS AGO ;ONGOING: YES
     Route: 042
  2. TOPROL XL [Concomitant]
     Active Substance: METOPROLOL SUCCINATE
     Indication: Hypertension
     Route: 048
  3. COZAAR [Concomitant]
     Active Substance: LOSARTAN POTASSIUM
     Indication: Hypertension
     Dosage: STARTED AT LEAST 8 YEARS AGO ;ONGOING: YES
     Route: 048
  4. LIPITOR [Concomitant]
     Active Substance: ATORVASTATIN CALCIUM
     Dosage: STARTED ABOUT 7 YEARS AGO ;ONGOING: YES
     Route: 048
  5. LEXAPROFEN [Concomitant]
     Indication: Anxiety
     Dosage: STARTED ABOUT 9 YEARS AGO ;ONGOING: YES
     Route: 048
  6. LEXAPROFEN [Concomitant]
     Indication: Depression
  7. VITAMIN D3 [Concomitant]
     Active Substance: CHOLECALCIFEROL
     Indication: Vitamin D decreased
     Dosage: 5000 UNITS STARTED PROBABLY 5 YEARS AGO ;ONGOING: YES
     Route: 048
  8. VITAMIN B12 [Concomitant]
     Active Substance: CYANOCOBALAMIN

REACTIONS (5)
  - COVID-19 pneumonia [Recovered/Resolved]
  - Vertigo [Recovered/Resolved]
  - Diplopia [Recovering/Resolving]
  - Neuritis cranial [Unknown]
  - Headache [Unknown]

NARRATIVE: CASE EVENT DATE: 20210801
